FAERS Safety Report 8917729 (Version 1)
Quarter: 2012Q4

REPORT INFORMATION
  Report Type: Report from Study
  Country: US (occurrence: US)
  Receive Date: 20121119
  Receipt Date: 20121119
  Transmission Date: 20130627
  Serious: Yes (Other)
  Sender: FDA-Public Use
  Company Number: US-ABBOTT-12P-163-1008457-00

PATIENT
  Age: 65 None
  Sex: Female
  Weight: 63.56 kg

DRUGS (7)
  1. HUMIRA [Suspect]
     Indication: PSORIASIS
     Route: 042
  2. HUMIRA [Suspect]
     Indication: ARTHRITIS
  3. REMICADE [Suspect]
     Indication: PSORIASIS
     Route: 042
  4. REMICADE [Suspect]
     Indication: ARTHRITIS
  5. SERTRALINE [Concomitant]
     Indication: PRODUCT USED FOR UNKNOWN INDICATION
     Route: 048
  6. SERTRALINE [Concomitant]
     Indication: NERVOUSNESS
     Route: 048
  7. SERTRALINE [Concomitant]
     Indication: ARTHRITIS
     Route: 048

REACTIONS (6)
  - Incontinence [Not Recovered/Not Resolved]
  - Cystitis [Recovered/Resolved]
  - Headache [Not Recovered/Not Resolved]
  - Arthritis [Unknown]
  - Malaise [Unknown]
  - Head discomfort [Unknown]
